FAERS Safety Report 16609246 (Version 1)
Quarter: 2019Q3

REPORT INFORMATION
  Report Type: Report from Study
  Country: EG (occurrence: EG)
  Receive Date: 20190722
  Receipt Date: 20190722
  Transmission Date: 20191004
  Serious: Yes (Death)
  Sender: FDA-Public Use
  Company Number: EG-SEATTLE GENETICS-2019SGN01171

PATIENT
  Sex: Male

DRUGS (1)
  1. BRENTUXIMAB VEDOTIN-MPI [Suspect]
     Active Substance: BRENTUXIMAB VEDOTIN
     Indication: HODGKIN^S DISEASE
     Dosage: UNK
     Route: 042
     Dates: start: 20190303, end: 20190718

REACTIONS (4)
  - Movement disorder [Unknown]
  - Death [Fatal]
  - Decubitus ulcer [Unknown]
  - Hypoaesthesia [Unknown]
